FAERS Safety Report 14561975 (Version 2)
Quarter: 2018Q1

REPORT INFORMATION
  Report Type: Spontaneous
  Country: US (occurrence: US)
  Receive Date: 20180222
  Receipt Date: 20180309
  Transmission Date: 20180509
  Serious: Yes (Life-Threatening, Other)
  Sender: FDA-Public Use
  Company Number: US-009507513-1802USA007470

PATIENT
  Sex: Female

DRUGS (1)
  1. BRIDION [Suspect]
     Active Substance: SUGAMMADEX
     Indication: ANAESTHESIA REVERSAL
     Dosage: 5MG/KG AND THAT PATIENT WEIGHT APPROXIMATELY 70KG TO 80KG
     Route: 042

REACTIONS (2)
  - Overdose [Unknown]
  - Cardiac failure [Recovered/Resolved]
